FAERS Safety Report 9160225 (Version 1)
Quarter: 2013Q1

REPORT INFORMATION
  Report Type: Spontaneous
  Country: US (occurrence: US)
  Receive Date: 20130313
  Receipt Date: 20130313
  Transmission Date: 20140127
  Serious: Yes (Other)
  Sender: FDA-Public Use
  Company Number: US-ELI_LILLY_AND_COMPANY-US201303000214

PATIENT
  Sex: Male

DRUGS (8)
  1. ZYPREXA RELPREVV [Suspect]
     Indication: SCHIZOPHRENIA, PARANOID TYPE
     Dosage: 300 MG, 2/M
     Dates: start: 20120302
  2. ZYPREXA INTRAMUSCULAR [Concomitant]
     Dosage: 10 MG, PRN
     Route: 030
  3. THORAZINE [Concomitant]
     Dosage: 300 MG, TID
  4. BENADRYL [Concomitant]
     Dosage: 150 MG, QD
  5. TRILEPTAL [Concomitant]
     Dosage: 300 MG, BID
  6. PROTONIX [Concomitant]
     Dosage: 40 MG, QD
  7. COLACE [Concomitant]
     Dosage: 100 MG, BID
  8. ATIVAN [Concomitant]
     Dosage: 2 MG, PRN

REACTIONS (2)
  - Schizophrenia, paranoid type [Unknown]
  - Drug dose omission [Unknown]
